FAERS Safety Report 15490532 (Version 2)
Quarter: 2018Q4

REPORT INFORMATION
  Report Type: Report from Study
  Country: FR (occurrence: FR)
  Receive Date: 20181011
  Receipt Date: 20181014
  Transmission Date: 20190205
  Serious: Yes (Hospitalization)
  Sender: FDA-Public Use
  Company Number: PHHY2016FR066625

PATIENT
  Age: 8 Year
  Sex: Male
  Weight: 28 kg

DRUGS (16)
  1. TRILEPTAL [Concomitant]
     Active Substance: OXCARBAZEPINE
     Indication: EPILEPSY
     Dosage: 450 MG, BID
     Route: 065
  2. URBANYL [Concomitant]
     Active Substance: CLOBAZAM
     Dosage: 5 MG, QD
     Route: 048
     Dates: start: 201504, end: 20171126
  3. URBANYL [Concomitant]
     Active Substance: CLOBAZAM
     Dosage: 5 MG, BID
     Route: 048
     Dates: start: 20171127
  4. KEPPRA [Concomitant]
     Active Substance: LEVETIRACETAM
     Indication: EPILEPSY
     Route: 065
     Dates: start: 20151014
  5. TRILEPTAL [Concomitant]
     Active Substance: OXCARBAZEPINE
     Dosage: 900 MG, QD (300 MG AND 600 MG)
     Route: 048
     Dates: start: 20171007, end: 20171129
  6. VIMPAT [Concomitant]
     Active Substance: LACOSAMIDE
     Dosage: 150 MG, QD (100 MG AND 50 MG)
     Route: 048
     Dates: start: 20161129
  7. TRILEPTAL [Concomitant]
     Active Substance: OXCARBAZEPINE
     Dosage: 300 MG, BID
     Route: 048
     Dates: start: 20180327
  8. TRILEPTAL [Concomitant]
     Active Substance: OXCARBAZEPINE
     Dosage: 300 MG, BID
     Route: 048
     Dates: start: 20180426
  9. EPITOMAX [Concomitant]
     Active Substance: TOPIRAMATE
     Indication: EPILEPSY
     Dosage: 15 MG, BID
     Route: 048
     Dates: start: 20111017
  10. URBANYL [Concomitant]
     Active Substance: CLOBAZAM
     Indication: EPILEPSY
     Dosage: 5 MG, QD
     Route: 048
     Dates: start: 2011
  11. TRILEPTAL [Concomitant]
     Active Substance: OXCARBAZEPINE
     Dosage: 780 MG, 3DD
     Route: 048
     Dates: start: 20120620
  12. URBANYL [Concomitant]
     Active Substance: CLOBAZAM
     Dosage: 7.5 MG, (2.5+5) BID
     Route: 048
     Dates: start: 20180110
  13. VOTUBIA [Suspect]
     Active Substance: EVEROLIMUS
     Indication: TUBEROUS SCLEROSIS COMPLEX
     Dosage: 5 MG, QD
     Route: 048
     Dates: start: 20130606, end: 20151016
  14. TRILEPTAL [Concomitant]
     Active Substance: OXCARBAZEPINE
     Dosage: 600 MG, QD
     Route: 048
     Dates: start: 20171007
  15. VOTUBIA [Suspect]
     Active Substance: EVEROLIMUS
     Dosage: 2.5 MG, QD
     Route: 048
     Dates: start: 20160616
  16. VIMPAT [Concomitant]
     Active Substance: LACOSAMIDE
     Indication: EPILEPSY
     Dosage: 100 MG, BID
     Route: 048
     Dates: start: 20150304

REACTIONS (5)
  - Epilepsy [Recovered/Resolved]
  - Partial seizures [Recovered/Resolved]
  - Epilepsy [Recovered/Resolved]
  - Pruritus [Unknown]
  - Epilepsy [Recovered/Resolved]

NARRATIVE: CASE EVENT DATE: 20151016
